FAERS Safety Report 13900684 (Version 1)
Quarter: 2017Q3

REPORT INFORMATION
  Report Type: Spontaneous
  Country: JP (occurrence: JP)
  Receive Date: 20170824
  Receipt Date: 20170824
  Transmission Date: 20171127
  Serious: Yes (Hospitalization)
  Sender: FDA-Public Use
  Company Number: JP-JNJFOC-20170821272

PATIENT
  Age: 78 Year
  Sex: Male
  Weight: 73 kg

DRUGS (10)
  1. MAINTATE [Concomitant]
     Active Substance: BISOPROLOL FUMARATE
     Dosage: BEFORE THE ADMINISTRATION OF CANAGLIFLOZIN
     Route: 048
  2. TAKEPRON [Concomitant]
     Active Substance: LANSOPRAZOLE
     Dosage: STARTED BEFORE THE ADMINISTRATION OF CANAGLIFLOZIN
     Route: 048
  3. CRESTOR [Concomitant]
     Active Substance: ROSUVASTATIN CALCIUM
     Dosage: STARTED BEFORE THE ADMINISTRATION OF CANAGLIFLOZIN
     Route: 048
  4. METGLUCO [Concomitant]
     Active Substance: METFORMIN HYDROCHLORIDE
     Indication: TYPE 2 DIABETES MELLITUS
     Route: 048
     Dates: start: 20160526
  5. ELIQUIS [Concomitant]
     Active Substance: APIXABAN
     Dosage: STARTED BEFORE THE ADMINISTRATION OF CANAGLIFLOZIN
     Route: 048
  6. NORVASC [Concomitant]
     Active Substance: AMLODIPINE BESYLATE
     Dosage: STARTED BEFORE THE ADMINISTRATION OF CANAGLIFLOZIN
     Route: 048
  7. EPADEL [Concomitant]
     Active Substance: ICOSAPENT
     Dosage: STARTED BEFORE THE ADMINISTRATION OF CANAGLIFLOZIN
     Route: 048
  8. CANAGLU [Suspect]
     Active Substance: CANAGLIFLOZIN
     Indication: TYPE 2 DIABETES MELLITUS
     Route: 048
     Dates: start: 20150728
  9. BAYASPIRIN [Concomitant]
     Active Substance: ASPIRIN
     Dosage: STARTED BEFORE THE ADMINISTRATION OF CANAGLIFLOZIN
     Route: 048
  10. BLOPRESS [Concomitant]
     Active Substance: CANDESARTAN CILEXETIL
     Dosage: STARTED BEFORE THE ADMINISTRATION OF CANAGLIFLOZIN
     Route: 048

REACTIONS (1)
  - Angina pectoris [Recovered/Resolved]

NARRATIVE: CASE EVENT DATE: 20161007
